FAERS Safety Report 10362526 (Version 1)
Quarter: 2014Q1

REPORT INFORMATION
  Report Type: Spontaneous
  Country: US (occurrence: None)
  Receive Date: 20140306
  Receipt Date: 20140306
  Transmission Date: 20141002
  Serious: Yes (Hospitalization)
  Sender: FDA-Public Use
  Company Number: 163-21880-13051472

PATIENT
  Age: 77 Year
  Sex: Female

DRUGS (9)
  1. REVLIMID [Suspect]
     Indication: PLASMA CELL MYELOMA
     Dosage: 25 MG, 21 IN 21 D, PO
     Route: 048
     Dates: start: 20130314
  2. ATIVAN [Concomitant]
  3. BACID [Concomitant]
  4. CARDIZEM [Concomitant]
  5. CELEXA [Concomitant]
  6. COMBIVENT [Concomitant]
  7. GLUCOTROL [Concomitant]
  8. IMODIUM A-D [Concomitant]
  9. LASIX (FUROSEMIDE) (UNKNOWN) [Concomitant]

REACTIONS (3)
  - Asthenia [None]
  - Oedema peripheral [None]
  - Full blood count decreased [None]
